FAERS Safety Report 6433128-5 (Version None)
Quarter: 2009Q4

REPORT INFORMATION
  Report Type: 
  Country: None (occurrence: None)
  Receive Date: 20091109
  Receipt Date: 20091030
  Transmission Date: 20100525
  Serious: Yes (Hospitalization)
  Sender: FDA-Public Use
  Company Number: GB-TEVA-214171ISR

PATIENT
  Sex: Female

DRUGS (2)
  1. MIRTAZAPINE [Suspect]
  2. RISPERIDONE [Interacting]
     Indication: DEPRESSION
     Route: 048

REACTIONS (2)
  - DRUG INTERACTION [None]
  - ILEUS [None]
